FAERS Safety Report 4707956-8 (Version None)
Quarter: 2005Q3

REPORT INFORMATION
  Report Type: 
  Country: None (occurrence: None)
  Receive Date: 20050707
  Receipt Date: 20050404
  Transmission Date: 20060218
  Serious: Yes (Hospitalization)
  Sender: FDA-Public Use
  Company Number: 200511023JP

PATIENT
  Age: 88 Year
  Sex: Female

DRUGS (14)
  1. KETEK [Suspect]
     Route: 048
     Dates: start: 20050314
  2. THEO-DUR [Suspect]
     Route: 048
     Dates: start: 20050222
  3. CODEINE PHOSPHATE [Suspect]
     Route: 048
     Dates: start: 20050222
  4. MEDICON [Suspect]
     Route: 048
     Dates: start: 20050222
  5. SPIROPENT [Suspect]
     Route: 048
     Dates: start: 20050222
  6. MUCODYNE [Concomitant]
     Route: 048
     Dates: start: 20050222
  7. MUCOSOLVAN [Concomitant]
     Route: 048
     Dates: start: 20050222
  8. THEODRIP [Concomitant]
     Route: 041
     Dates: start: 20050314
  9. SOLU-CORTEF [Concomitant]
     Route: 041
     Dates: start: 20050314
  10. DALACIN [Concomitant]
     Route: 041
     Dates: start: 20050314
  11. ASPIRIN [Concomitant]
     Route: 048
     Dates: start: 20040227
  12. AMARYL [Concomitant]
     Route: 048
     Dates: start: 20040227
  13. GLUCOBAY [Concomitant]
     Route: 048
     Dates: start: 20040227
  14. NICARDIPINE HCL [Concomitant]
     Route: 048
     Dates: start: 20040227

REACTIONS (4)
  - CARDIAC FAILURE [None]
  - LOSS OF CONSCIOUSNESS [None]
  - OBSTRUCTIVE AIRWAYS DISORDER [None]
  - POLLAKIURIA [None]
